FAERS Safety Report 6507864-6 (Version None)
Quarter: 2009Q4

REPORT INFORMATION
  Report Type: 
  Country: None (occurrence: None)
  Receive Date: 20091221
  Receipt Date: 20091216
  Transmission Date: 20100525
  Serious: Yes (Other)
  Sender: FDA-Public Use
  Company Number: A0835420A

PATIENT
  Age: 24 Year
  Sex: Male

DRUGS (3)
  1. LAMICTAL [Suspect]
     Indication: CRYING
     Dosage: 25MG PER DAY
     Route: 048
     Dates: start: 20091114
  2. BUPROPION HYDROCHLORIDE [Suspect]
     Indication: DEPRESSION
     Dosage: 150MG TWICE PER DAY
     Route: 048
     Dates: start: 20091114, end: 20091214
  3. WELLBUTRIN XL [Concomitant]
     Route: 048

REACTIONS (3)
  - DRY MOUTH [None]
  - HANGOVER [None]
  - SUICIDAL IDEATION [None]
